FAERS Safety Report 25310813 (Version 1)
Quarter: 2025Q2

REPORT INFORMATION
  Report Type: Spontaneous
  Country: FI (occurrence: FI)
  Receive Date: 20250514
  Receipt Date: 20250514
  Transmission Date: 20250716
  Serious: Yes (Hospitalization)
  Sender: ABBVIE
  Company Number: FI-ABBVIE-6276010

PATIENT
  Age: 22 Year

DRUGS (2)
  1. RINVOQ [Suspect]
     Active Substance: UPADACITINIB
     Indication: Product used for unknown indication
     Route: 048
     Dates: start: 202504
  2. RINVOQ [Suspect]
     Active Substance: UPADACITINIB
     Indication: Product used for unknown indication
     Route: 048
     Dates: start: 202410, end: 202504

REACTIONS (3)
  - Haematochezia [Recovered/Resolved]
  - Acne cystic [Unknown]
  - Faecal calprotectin abnormal [Recovered/Resolved]

NARRATIVE: CASE EVENT DATE: 20240101
